FAERS Safety Report 25627244 (Version 1)
Quarter: 2025Q3

REPORT INFORMATION
  Report Type: Spontaneous
  Country: US (occurrence: US)
  Receive Date: 20250731
  Receipt Date: 20250731
  Transmission Date: 20251021
  Serious: Yes (Hospitalization)
  Sender: AUROBINDO
  Company Number: US-AUROBINDO-AUR-APL-2025-039321

PATIENT
  Age: 54 Year
  Sex: Male

DRUGS (3)
  1. NALOXONE HYDROCHLORIDE [Suspect]
     Active Substance: NALOXONE HYDROCHLORIDE
     Indication: Catatonia
     Route: 065
  2. ATROPINE [Concomitant]
     Active Substance: ATROPINE
     Indication: Bradycardia
     Route: 065
  3. EPINEPHRINE [Concomitant]
     Active Substance: EPINEPHRINE
     Indication: Chronotropic incompetence
     Route: 065

REACTIONS (1)
  - Therapy non-responder [Unknown]
